FAERS Safety Report 6196068-5 (Version None)
Quarter: 2009Q2

REPORT INFORMATION
  Report Type: 
  Country: None (occurrence: None)
  Receive Date: 20090520
  Receipt Date: 20040805
  Transmission Date: 20091009
  Serious: Yes (Hospitalization)
  Sender: FDA-Public Use
  Company Number: NL-ROCHE-606170

PATIENT
  Sex: Male

DRUGS (9)
  1. CAPECITABINE [Suspect]
     Route: 048
  2. CAPECITABINE [Suspect]
     Route: 048
     Dates: start: 20040729, end: 20040812
  3. IRINOTECAN HCL [Suspect]
     Route: 065
     Dates: start: 20040729
  4. NEWACE [Concomitant]
  5. AMARYL [Concomitant]
  6. EUCARDIC [Concomitant]
  7. METFORMIN HCL [Concomitant]
  8. CARBASALATE CALCIUM [Concomitant]
  9. VITAMIN B6 [Concomitant]

REACTIONS (1)
  - DIABETIC KETOACIDOSIS [None]
